FAERS Safety Report 9805568 (Version 1)
Quarter: 2014Q1

REPORT INFORMATION
  Report Type: Spontaneous
  Country: US (occurrence: US)
  Receive Date: 20140109
  Receipt Date: 20140109
  Transmission Date: 20141002
  Serious: Yes (Death)
  Sender: FDA-Public Use
  Company Number: US-ASTRAZENECA-2014SE01214

PATIENT
  Age: 46 Year
  Sex: Male

DRUGS (7)
  1. ATENOLOL [Suspect]
     Route: 048
  2. PAROXETINE [Suspect]
     Route: 048
  3. ACETAMINOPHEN+HYDROCODONE [Suspect]
     Route: 048
  4. AMITRIPTYLINE [Suspect]
     Route: 048
  5. DESIPRAMINE [Suspect]
     Route: 048
  6. ALPRAZOLAM [Suspect]
     Route: 048
  7. METHADONE [Suspect]
     Route: 048

REACTIONS (2)
  - Toxicity to various agents [Fatal]
  - Completed suicide [Fatal]
